FAERS Safety Report 12340223 (Version 1)
Quarter: 2016Q2

REPORT INFORMATION
  Report Type: Spontaneous
  Country: US (occurrence: None)
  Receive Date: 20160505
  Receipt Date: 20160505
  Transmission Date: 20160815
  Serious: No
  Sender: FDA-Public Use
  Company Number: None

PATIENT
  Sex: Male

DRUGS (5)
  1. METOPROLOL. [Concomitant]
     Active Substance: METOPROLOL
  2. SPIRONOLACTONE. [Concomitant]
     Active Substance: SPIRONOLACTONE
  3. XARELTO [Suspect]
     Active Substance: RIVAROXABAN
  4. LOSARTAN. [Concomitant]
     Active Substance: LOSARTAN
  5. DIGOXIN. [Suspect]
     Active Substance: DIGOXIN

REACTIONS (6)
  - Nasopharyngitis [None]
  - Tremor [None]
  - Cardiac disorder [None]
  - Weight decreased [None]
  - Decreased appetite [None]
  - Tooth infection [None]
